FAERS Safety Report 25165886 (Version 3)
Quarter: 2025Q2

REPORT INFORMATION
  Report Type: Spontaneous
  Country: FI (occurrence: FI)
  Receive Date: 20250407
  Receipt Date: 20250528
  Transmission Date: 20250717
  Serious: Yes (Other)
  Sender: ABBVIE
  Company Number: FI-ABBVIE-6207863

PATIENT
  Age: 30 Year
  Sex: Female

DRUGS (4)
  1. HUMIRA [Suspect]
     Active Substance: ADALIMUMAB
     Indication: Product used for unknown indication
     Route: 058
  2. HUMIRA [Suspect]
     Active Substance: ADALIMUMAB
     Route: 058
  3. RINVOQ [Suspect]
     Active Substance: UPADACITINIB
     Indication: Rheumatic disorder
     Route: 048
  4. RINVOQ [Suspect]
     Active Substance: UPADACITINIB
     Indication: Rheumatic disorder
     Route: 048

REACTIONS (2)
  - Crohn^s disease [Unknown]
  - Drug resistance [Unknown]

NARRATIVE: CASE EVENT DATE: 20240101
